FAERS Safety Report 18449091 (Version 6)
Quarter: 2024Q3

REPORT INFORMATION
  Report Type: Report from Study
  Country: JP (occurrence: JP)
  Receive Date: 20201102
  Receipt Date: 20240923
  Transmission Date: 20241017
  Serious: Yes (Hospitalization)
  Sender: ABBVIE
  Company Number: JP-ABBVIE-20K-087-3597494-00

PATIENT
  Age: 48 Year
  Sex: Female

DRUGS (6)
  1. SKYRIZI [Suspect]
     Active Substance: RISANKIZUMAB-RZAA
     Indication: Psoriasis
     Dosage: 150 MG/MONTH
     Route: 058
     Dates: start: 20200701, end: 20200729
  2. SKYRIZI [Suspect]
     Active Substance: RISANKIZUMAB-RZAA
     Route: 058
     Dates: start: 20200729, end: 20201028
  3. ETODOLAC [Concomitant]
     Active Substance: ETODOLAC
     Indication: Psoriatic arthropathy
     Route: 048
     Dates: start: 20200729
  4. IXEKIZUMAB [Concomitant]
     Active Substance: IXEKIZUMAB
     Indication: Psoriasis
     Dosage: (GENETICAL RECOMBINATION)
     Dates: start: 20201028, end: 20201111
  5. IXEKIZUMAB [Concomitant]
     Active Substance: IXEKIZUMAB
     Indication: Psoriasis
     Dates: start: 20201111, end: 20210120
  6. FOLIC ACID [Concomitant]
     Active Substance: FOLIC ACID
     Indication: Vitamin supplementation
     Dates: start: 20200825, end: 20200922

REACTIONS (3)
  - Ingrowing nail [Recovered/Resolved]
  - Cholestasis [Not Recovered/Not Resolved]
  - Psoriatic arthropathy [Recovered/Resolved]

NARRATIVE: CASE EVENT DATE: 20200825
